FAERS Safety Report 7952723-5 (Version None)
Quarter: 2011Q4

REPORT INFORMATION
  Report Type: 
  Country: None (occurrence: None)
  Receive Date: 20111201
  Receipt Date: 20111121
  Transmission Date: 20120403
  Serious: Yes (Hospitalization)
  Sender: FDA-Public Use
  Company Number: RO-GENZYME-CERZ-1002197

PATIENT
  Sex: Male
  Weight: 35 kg

DRUGS (3)
  1. CEREZYME [Suspect]
     Indication: GAUCHER'S DISEASE
     Dosage: 60 U/KG, Q2W
     Route: 042
     Dates: start: 20100601
  2. CEREZYME [Suspect]
     Dosage: 60 U/KG, Q2W
     Route: 042
     Dates: start: 20070701
  3. CEREZYME [Suspect]
     Dosage: 30 U/KG, UNK
     Route: 042
     Dates: start: 20090901, end: 20100601

REACTIONS (1)
  - APPENDICITIS [None]
